FAERS Safety Report 8812862 (Version 1)
Quarter: 2012Q4

REPORT INFORMATION
  Report Type: 
  Country: US (occurrence: US)
  Receive Date: 20120927
  Receipt Date: 20120927
  Transmission Date: 20130627
  Serious: No
  Sender: FDA-Public Use
  Company Number: US-AMGEN-USASP2012047607

PATIENT
  Age: 61 Year
  Sex: Female

DRUGS (4)
  1. XGEVA [Suspect]
     Indication: METASTASES TO BONE
     Dosage: 120 mg, q4wk
     Route: 058
     Dates: start: 201103
  2. FASLODEX                           /01285001/ [Concomitant]
     Dosage: UNK
  3. CITRACAL                           /00751520/ [Concomitant]
     Dosage: UNK
  4. CALCIUM [Concomitant]
     Dosage: UNK

REACTIONS (7)
  - Musculoskeletal pain [Not Recovered/Not Resolved]
  - Pain in extremity [Not Recovered/Not Resolved]
  - Muscle tightness [Not Recovered/Not Resolved]
  - Tendon disorder [Not Recovered/Not Resolved]
  - Joint range of motion decreased [Not Recovered/Not Resolved]
  - Mobility decreased [Not Recovered/Not Resolved]
  - Middle insomnia [Not Recovered/Not Resolved]
